FAERS Safety Report 11362875 (Version 1)
Quarter: 2015Q3

REPORT INFORMATION
  Report Type: Spontaneous
  Country: US (occurrence: None)
  Receive Date: 20150807
  Receipt Date: 20150807
  Transmission Date: 20151125
  Serious: Yes (Other)
  Sender: FDA-Public Use
  Company Number: ADR-2015-01472

PATIENT
  Age: 59 Year
  Sex: Male

DRUGS (3)
  1. BUPIVACAINE INTRATHECAL [Suspect]
     Active Substance: BUPIVACAINE
     Dosage: 3.19 MG/DAY
  2. BACLOFEN INTRATHECAL [Suspect]
     Active Substance: BACLOFEN
     Indication: PAIN
  3. MORPHINE INTRATHECAL [Suspect]
     Active Substance: MORPHINE
     Dosage: 7.99 MG/DAY

REACTIONS (2)
  - Parosmia [None]
  - Device malfunction [None]
